FAERS Safety Report 4879690-5 (Version None)
Quarter: 2006Q1

REPORT INFORMATION
  Report Type: 
  Country: None (occurrence: None)
  Receive Date: 20060111
  Receipt Date: 20051227
  Transmission Date: 20060701
  Serious: No
  Sender: FDA-Public Use
  Company Number: 05-0169PO

PATIENT
  Age: 50 Year
  Sex: Female

DRUGS (3)
  1. MEFENAMIC ACID [Suspect]
     Indication: ILL-DEFINED DISORDER
     Dosage: TID, ORAL
     Route: 048
     Dates: start: 20050901, end: 20050902
  2. ACETAMINOPHEN W/ PROPOXYPHENE HCL [Concomitant]
  3. AMOXICILLIN [Concomitant]

REACTIONS (1)
  - CELLULITIS [None]
